FAERS Safety Report 12225657 (Version 1)
Quarter: 2016Q1

REPORT INFORMATION
  Report Type: Spontaneous
  Country: BR (occurrence: BR)
  Receive Date: 20160331
  Receipt Date: 20160331
  Transmission Date: 20160526
  Serious: Yes (Other)
  Sender: FDA-Public Use
  Company Number: BR-MYLANLABS-2016M1013505

PATIENT

DRUGS (5)
  1. URSACOL [Suspect]
     Active Substance: URSODIOL
     Indication: CHOLESTASIS OF PREGNANCY
     Route: 065
  2. PROGESTERONE. [Suspect]
     Active Substance: PROGESTERONE
     Indication: ENDOMETRIAL DISORDER
     Route: 067
  3. DEXAMETHASONE. [Suspect]
     Active Substance: DEXAMETHASONE
     Indication: 17-ALPHA-HYDROXYLASE DEFICIENCY
     Dosage: 0.5 MG/DAY
     Route: 048
  4. ESTRADIOL. [Suspect]
     Active Substance: ESTRADIOL
     Indication: ENDOMETRIAL DISORDER
     Dosage: 4 MG/DAY
     Route: 048
  5. INSULIN [Suspect]
     Active Substance: INSULIN NOS
     Indication: GESTATIONAL DIABETES
     Route: 065

REACTIONS (4)
  - Gestational diabetes [Unknown]
  - Maternal exposure before pregnancy [Recovered/Resolved]
  - Premature labour [Recovered/Resolved]
  - Cholestasis of pregnancy [Unknown]
